FAERS Safety Report 13867491 (Version 1)
Quarter: 2017Q3

REPORT INFORMATION
  Report Type: Report from Study
  Country: US (occurrence: US)
  Receive Date: 20170814
  Receipt Date: 20170814
  Transmission Date: 20171127
  Serious: Yes (Life-Threatening, Hospitalization)
  Sender: FDA-Public Use
  Company Number: US-ACTELION-A-US2017-156953

PATIENT
  Age: 49 Year
  Sex: Female

DRUGS (9)
  1. LEVOTHYROXINE. [Concomitant]
     Active Substance: LEVOTHYROXINE
  2. OMEPRAZOLE. [Concomitant]
     Active Substance: OMEPRAZOLE
  3. FUROSEMIDE. [Concomitant]
     Active Substance: FUROSEMIDE
  4. REVATIO [Concomitant]
     Active Substance: SILDENAFIL CITRATE
     Dosage: 20 MG, TID
  5. OXYCODONE [Concomitant]
     Active Substance: OXYCODONE
  6. ALPRAZOLAM. [Concomitant]
     Active Substance: ALPRAZOLAM
  7. POTASSIUM [Concomitant]
     Active Substance: POTASSIUM
  8. OPSUMIT [Suspect]
     Active Substance: MACITENTAN
     Indication: PULMONARY ARTERIAL HYPERTENSION
     Dosage: 10 MG, QD
     Route: 048
     Dates: start: 201611
  9. FLUOXETINE [Concomitant]
     Active Substance: FLUOXETINE HYDROCHLORIDE

REACTIONS (4)
  - Hepatocellular carcinoma [Not Recovered/Not Resolved]
  - Portopulmonary hypertension [Unknown]
  - Cancer surgery [Not Recovered/Not Resolved]
  - Disease progression [Not Recovered/Not Resolved]

NARRATIVE: CASE EVENT DATE: 20170615
